FAERS Safety Report 7532133-5 (Version None)
Quarter: 2011Q2

REPORT INFORMATION
  Report Type: 
  Country: None (occurrence: None)
  Receive Date: 20110608
  Receipt Date: 20110602
  Transmission Date: 20111010
  Serious: No
  Sender: FDA-Public Use
  Company Number: US-PFIZER INC-2011120888

PATIENT
  Age: 8 Year
  Sex: Male

DRUGS (1)
  1. GEODON [Suspect]
     Dosage: 20 MG, 1X/DAY

REACTIONS (1)
  - SEDATION [None]
